FAERS Safety Report 11330339 (Version 2)
Quarter: 2015Q3

REPORT INFORMATION
  Report Type: Spontaneous
  Country: US (occurrence: US)
  Receive Date: 20150803
  Receipt Date: 20150807
  Transmission Date: 20151125
  Serious: No
  Sender: FDA-Public Use
  Company Number: US-ASTRAZENECA-2015SE72885

PATIENT
  Age: 68 Year
  Sex: Female
  Weight: 56.2 kg

DRUGS (3)
  1. CRESTOR [Suspect]
     Active Substance: ROSUVASTATIN CALCIUM
     Indication: BLOOD CHOLESTEROL INCREASED
     Route: 048
     Dates: start: 201505
  2. CRESTOR [Suspect]
     Active Substance: ROSUVASTATIN CALCIUM
     Indication: BLOOD CHOLESTEROL INCREASED
     Dosage: 20 MG THREE TIMES A WEEK, EVERY OTHER DAY
     Route: 048
     Dates: start: 2014, end: 201404
  3. LEVOTHYROXINE. [Concomitant]
     Active Substance: LEVOTHYROXINE
     Indication: HYPOTHYROIDISM
     Route: 048
     Dates: start: 201505

REACTIONS (7)
  - Intentional product misuse [Unknown]
  - Low density lipoprotein increased [Unknown]
  - Product packaging quantity issue [Unknown]
  - Drug ineffective [Unknown]
  - High density lipoprotein increased [Unknown]
  - Hypothyroidism [Unknown]
  - Blood cholesterol increased [Unknown]

NARRATIVE: CASE EVENT DATE: 2014
